FAERS Safety Report 9187569 (Version 2)
Quarter: 2013Q2

REPORT INFORMATION
  Report Type: Spontaneous
  Country: JP (occurrence: JP)
  Receive Date: 20130325
  Receipt Date: 20130415
  Transmission Date: 20140414
  Serious: Yes (Life-Threatening, Other)
  Sender: FDA-Public Use
  Company Number: JP-PFIZER INC-2013094954

PATIENT
  Age: 50 Year
  Sex: Male
  Weight: 61.2 kg

DRUGS (14)
  1. CHAMPIX [Suspect]
     Indication: NICOTINE DEPENDENCE
     Dosage: 0.5 MG, 1X/DAY
     Route: 048
     Dates: start: 20130301, end: 20130303
  2. CHAMPIX [Suspect]
     Dosage: 0.5 MG, 2X/DAY
     Route: 048
     Dates: start: 20130304, end: 20130307
  3. CHAMPIX [Suspect]
     Dosage: 1 MG, 2X/DAY
     Route: 048
     Dates: start: 20130308, end: 20130314
  4. LIMAS [Suspect]
     Indication: BIPOLAR I DISORDER
     Dosage: 600 MG, DAILY
     Route: 048
  5. AMOBAN [Suspect]
     Indication: BIPOLAR I DISORDER
     Dosage: 10 MG, DAILY
     Route: 048
  6. LUVOX [Concomitant]
     Indication: BIPOLAR I DISORDER
     Dosage: 150 MG, DAILY
     Route: 048
  7. U-PAN [Concomitant]
     Indication: BIPOLAR I DISORDER
     Dosage: 4.5 MG, DAILY
     Route: 048
  8. ISOMYTAL [Concomitant]
     Indication: INSOMNIA
     Dosage: 0.2 G, AS NEEDED
     Route: 048
  9. ISOMYTAL [Concomitant]
     Indication: BIPOLAR I DISORDER
  10. WINTERMIN [Concomitant]
     Indication: INSOMNIA
     Dosage: 0.5 G, AS NEEDED
     Route: 048
  11. WINTERMIN [Concomitant]
     Indication: BIPOLAR I DISORDER
  12. LEXOTAN [Concomitant]
     Indication: BIPOLAR I DISORDER
     Dosage: 15 MG, DAILY
     Route: 048
  13. BENZALIN [Concomitant]
     Indication: BIPOLAR I DISORDER
     Dosage: 5 MG, DAILY
     Route: 048
  14. EURODIN [Concomitant]
     Indication: BIPOLAR I DISORDER
     Dosage: 0.3 MG, AS NEEDED
     Route: 048

REACTIONS (2)
  - Memory impairment [Not Recovered/Not Resolved]
  - Road traffic accident [Unknown]
